FAERS Safety Report 23143244 (Version 5)
Quarter: 2023Q4

REPORT INFORMATION
  Report Type: Spontaneous
  Country: US (occurrence: US)
  Receive Date: 20231103
  Receipt Date: 20231222
  Transmission Date: 20240110
  Serious: No
  Sender: FDA-Public Use
  Company Number: US-TORRENT-00012946

PATIENT
  Age: 79 Year
  Sex: Female
  Weight: 78 kg

DRUGS (1)
  1. PANTOPRAZOLE SODIUM [Suspect]
     Active Substance: PANTOPRAZOLE SODIUM
     Indication: Oesophagitis
     Dosage: STARTED 6 MONTHS AGO
     Route: 048

REACTIONS (5)
  - Product packaging issue [Unknown]
  - Drug ineffective [Unknown]
  - Dyspepsia [Not Recovered/Not Resolved]
  - Product administration error [Unknown]
  - Product quality issue [Unknown]
